FAERS Safety Report 5695206-8 (Version None)
Quarter: 2008Q2

REPORT INFORMATION
  Report Type: 
  Country: None (occurrence: None)
  Receive Date: 20080404
  Receipt Date: 20080326
  Transmission Date: 20081010
  Serious: Yes (Other)
  Sender: FDA-Public Use
  Company Number: AU-PFIZER INC-2008027515

PATIENT
  Sex: Male

DRUGS (7)
  1. LIPITOR [Suspect]
  2. ASTRIX [Concomitant]
  3. AVAPRO [Concomitant]
  4. IMMUNOSUPPRESSIVE AGENTS [Concomitant]
  5. PERMAX [Concomitant]
  6. PANTOPRAZOLE SODIUM [Concomitant]
  7. SALAZOPYRIN EN [Concomitant]

REACTIONS (1)
  - AGGRESSION [None]
